FAERS Safety Report 6198334-6 (Version None)
Quarter: 2009Q2

REPORT INFORMATION
  Report Type: 
  Country: None (occurrence: None)
  Receive Date: 20090521
  Receipt Date: 20090508
  Transmission Date: 20091009
  Serious: Yes (Other)
  Sender: FDA-Public Use
  Company Number: US-ROCHE-632197

PATIENT
  Age: 47 Year
  Sex: Male

DRUGS (2)
  1. PEGASYS [Suspect]
     Route: 065
     Dates: end: 20090408
  2. COPEGUS [Suspect]
     Route: 065
     Dates: end: 20090408

REACTIONS (2)
  - FALL [None]
  - ROTATOR CUFF SYNDROME [None]
